FAERS Safety Report 10156709 (Version 1)
Quarter: 2014Q2

REPORT INFORMATION
  Report Type: Spontaneous
  Country: US (occurrence: None)
  Receive Date: 20140506
  Receipt Date: 20140506
  Transmission Date: 20141212
  Serious: Yes (Hospitalization)
  Sender: FDA-Public Use
  Company Number: None

PATIENT
  Age: 81 Year
  Sex: Female

DRUGS (1)
  1. CLINDAMYCIN 300MG TEVA [Suspect]
     Indication: ENDODONTIC PROCEDURE
     Route: 048
     Dates: start: 20140115, end: 20140125

REACTIONS (2)
  - Clostridium difficile infection [None]
  - Weight decreased [None]
